FAERS Safety Report 5814770-9 (Version None)
Quarter: 2008Q3

REPORT INFORMATION
  Report Type: 
  Country: None (occurrence: None)
  Receive Date: 20080715
  Receipt Date: 20080703
  Transmission Date: 20090109
  Serious: Yes (Hospitalization)
  Sender: FDA-Public Use
  Company Number: GXKR2008DK06275

PATIENT
  Age: 75 Year
  Sex: Female

DRUGS (9)
  1. ZOLPIDEM [Suspect]
     Dosage: MAXIMALLY 20 TABLETS, ORAL
     Route: 048
  2. CETRIZINE (NGX) (CETIRIZINE) TABLET, 10MG [Suspect]
     Dosage: MAXIMALLY 7 TABLETS, ORAL
     Route: 048
  3. DIAZEPAM [Suspect]
     Dosage: MAXIMALLY 50 TABLETS, ORAL
     Route: 048
  4. TRAMADOL HCL [Suspect]
     Dosage: MAXIMALLY 10 TABLETS, ORAL
     Route: 048
  5. ATARAX [Suspect]
     Dosage: MAXIMALLY 20 TABLETS, ORAL
     Route: 048
  6. DALMADORM (FLURAZEPAM HYDROCHLORIDE) TABLET, 30MG [Suspect]
     Dosage: MAXIMALLY 20 TABLETS, ORAL
     Route: 048
  7. LEVOTHYROXINE SODIUM [Suspect]
     Dosage: , ORAL
     Route: 048
  8. NOVALGIN (METAMIZOLE SODIUM) DROPS [Suspect]
     Dosage: MAXIMALLY 20 ML, ORAL
     Route: 048
  9. TARGIN (NALOXONE HYDROCHLORIDE, OXYCODONE HYDROCHLORIDE) 5/10MG [Suspect]

REACTIONS (6)
  - BRADYPNOEA [None]
  - CARDIAC ARREST [None]
  - COLONIC ATONY [None]
  - COMA [None]
  - MULTIPLE DRUG OVERDOSE INTENTIONAL [None]
  - SUICIDE ATTEMPT [None]
